FAERS Safety Report 5389503-3 (Version None)
Quarter: 2007Q3

REPORT INFORMATION
  Report Type: 
  Country: None (occurrence: None)
  Receive Date: 20070717
  Receipt Date: 20070705
  Transmission Date: 20080115
  Serious: Yes (Disabling, Other)
  Sender: FDA-Public Use
  Company Number: US-PFIZER INC-2006120064

PATIENT
  Sex: Female
  Weight: 74.8 kg

DRUGS (12)
  1. DEPO-MEDROL [Suspect]
     Indication: OSTEOARTHRITIS
  2. DEPO-MEDROL [Suspect]
  3. DEPO-MEDROL [Suspect]
     Indication: ARTHRALGIA
  4. DIOVAN HCT [Concomitant]
  5. DARVOCET [Concomitant]
  6. VITAMIN CAP [Concomitant]
  7. CALCIUM CHLORIDE [Concomitant]
  8. MAGNESIUM SULFATE [Concomitant]
  9. FISH OIL [Concomitant]
  10. CARTILAGE [Concomitant]
  11. MOBIC [Concomitant]
  12. PRILOSEC [Concomitant]

REACTIONS (10)
  - BALANCE DISORDER [None]
  - BLOOD PRESSURE DECREASED [None]
  - DIZZINESS [None]
  - DYSARTHRIA [None]
  - DYSGRAPHIA [None]
  - GAIT DISTURBANCE [None]
  - IMPAIRED DRIVING ABILITY [None]
  - MUTISM [None]
  - PARALYSIS [None]
  - WEIGHT DECREASED [None]
